FAERS Safety Report 5858282-5 (Version None)
Quarter: 2008Q3

REPORT INFORMATION
  Report Type: 
  Country: None (occurrence: None)
  Receive Date: 20080826
  Receipt Date: 20080821
  Transmission Date: 20090109
  Serious: Yes (Death)
  Sender: FDA-Public Use
  Company Number: A0744335A

PATIENT
  Age: 69 Year
  Sex: Male
  Weight: 32 kg

DRUGS (4)
  1. SERETIDE [Suspect]
     Indication: CHRONIC OBSTRUCTIVE PULMONARY DISEASE
     Route: 055
     Dates: start: 20080711, end: 20080719
  2. AEROLIN [Concomitant]
     Dates: start: 19980701, end: 20080701
  3. AMINOPHYLLINE [Concomitant]
     Dates: start: 19980701, end: 20080701
  4. PREDNISONE TAB [Concomitant]
     Dates: start: 19980201, end: 20080701

REACTIONS (1)
  - DEATH [None]
